FAERS Safety Report 8473470-X (Version None)
Quarter: 2012Q2

REPORT INFORMATION
  Report Type: 
  Country: None (occurrence: None)
  Receive Date: 20120628
  Receipt Date: 20120622
  Transmission Date: 20120825
  Serious: Yes (Other)
  Sender: FDA-Public Use
  Company Number: US-AMGEN-USASP2012038940

PATIENT
  Age: 24 Year
  Sex: Female

DRUGS (2)
  1. ENBREL [Suspect]
     Indication: PSORIATIC ARTHROPATHY
     Dosage: UNK
     Dates: start: 20060101
  2. ENBREL [Suspect]
     Indication: PSORIASIS

REACTIONS (9)
  - HEADACHE [None]
  - MUSCLE TIGHTNESS [None]
  - PSORIASIS [None]
  - PERICARDITIS INFECTIVE [None]
  - PSORIATIC ARTHROPATHY [None]
  - INJECTION SITE PAIN [None]
  - PYREXIA [None]
  - NECK PAIN [None]
  - INJECTION SITE ERYTHEMA [None]
